FAERS Safety Report 19244574 (Version 5)
Quarter: 2022Q2

REPORT INFORMATION
  Report Type: Spontaneous
  Country: US (occurrence: US)
  Receive Date: 20210511
  Receipt Date: 20220622
  Transmission Date: 20220720
  Serious: No
  Sender: FDA-Public Use
  Company Number: US-PFIZER INC-2021210817

PATIENT
  Age: 76 Year
  Sex: Female
  Weight: 64.41 kg

DRUGS (2)
  1. IBRANCE [Suspect]
     Active Substance: PALBOCICLIB
     Indication: Breast cancer female
     Dosage: 125 MG
  2. IBRANCE [Suspect]
     Active Substance: PALBOCICLIB
     Dosage: 75MG, CYCLIC, WITH WATER EVERY MORNING ABOUT 10:00 FOR 21 DAYS AND OFF 7 DAYS

REACTIONS (5)
  - Product use complaint [Unknown]
  - Product quality issue [Unknown]
  - Abdominal discomfort [Unknown]
  - Illness [Recovered/Resolved]
  - Vomiting [Recovering/Resolving]
